FAERS Safety Report 21663693 (Version 1)
Quarter: 2022Q4

REPORT INFORMATION
  Report Type: Report from Study
  Country: US (occurrence: US)
  Receive Date: 20221130
  Receipt Date: 20221130
  Transmission Date: 20230113
  Serious: No
  Sender: FDA-Public Use
  Company Number: US-ABBVIE-4185879

PATIENT
  Sex: Female

DRUGS (24)
  1. HUMIRA [Suspect]
     Active Substance: ADALIMUMAB
     Indication: Rheumatoid arthritis
     Dosage: STRENGTH 40 MG
     Route: 058
     Dates: start: 20201216
  2. HUMIRA [Suspect]
     Active Substance: ADALIMUMAB
     Dosage: STRENGTH 40 MG
     Route: 058
     Dates: start: 202210
  3. CARISOPRODOL TAB 350MG [Concomitant]
     Indication: Product used for unknown indication
     Dosage: 350MG
     Route: 048
  4. FUROSEMIDE INJ 20MG/2ML [Concomitant]
     Indication: Product used for unknown indication
     Dosage: INJECTION 20MG/2ML
  5. ALPRAZOLAM TAB 0.5MG [Concomitant]
     Indication: Product used for unknown indication
     Dosage: 0.5 MG
     Route: 048
  6. DIAZEPAM INJ 10MG/2ML [Concomitant]
     Indication: Product used for unknown indication
     Dosage: INJECTION 10MG/2ML
  7. HUMALOG MIX INJ 75/25KWP [Concomitant]
     Indication: Product used for unknown indication
     Dosage: INJECTION 75/25KWP
  8. POT CHLORIDE CAP 10MEQ ER [Concomitant]
     Indication: Product used for unknown indication
     Dosage: 10MEQ ER
     Route: 048
  9. NORCO TAB 10-325MG [Concomitant]
     Indication: Product used for unknown indication
     Dosage: 10-325MG
     Route: 048
  10. LORAZEPAM [Concomitant]
     Active Substance: LORAZEPAM
     Indication: Product used for unknown indication
     Dosage: 1 MG
     Route: 048
  11. LISINOPRIL [Concomitant]
     Active Substance: LISINOPRIL
     Indication: Product used for unknown indication
     Route: 048
  12. LISINOPRIL [Concomitant]
     Active Substance: LISINOPRIL
     Indication: Product used for unknown indication
     Route: 048
  13. LISINOPRIL [Concomitant]
     Active Substance: LISINOPRIL
     Indication: Product used for unknown indication
     Route: 048
  14. METOPROL TAR TAB 50MG [Concomitant]
     Indication: Product used for unknown indication
     Dosage: 50 MG
     Route: 048
  15. FLUVASTATIN CAP 20MG [Concomitant]
     Indication: Product used for unknown indication
     Dosage: 20 MG
     Route: 048
  16. LATANOPROST SOL 0.005% [Concomitant]
     Indication: Product used for unknown indication
     Dosage: SOLUTION 0.005%
  17. METFORMIN TAB 1000MG [Concomitant]
     Indication: Product used for unknown indication
     Dosage: 1000MG
     Route: 048
  18. TIMOLOL POW MALEATE [Concomitant]
     Indication: Product used for unknown indication
  19. DOXYCYC MONO CAP 100MG [Concomitant]
     Indication: Product used for unknown indication
     Dosage: MONO CAP 100MG
     Route: 048
  20. PROAIR HFA AER [Concomitant]
     Indication: Product used for unknown indication
  21. BRIMONIDINE SOL 0.15% [Concomitant]
     Indication: Product used for unknown indication
     Dosage: SOL 0.15%
  22. LEVOTHYROXIN TAB 75MCG [Concomitant]
     Indication: Product used for unknown indication
     Dosage: 75MCG
  23. TOPIRAMATE CAP 25MG [Concomitant]
     Indication: Product used for unknown indication
     Dosage: 25 MG
     Route: 048
  24. DICLOFENAC TAB 75MG DR [Concomitant]
     Indication: Product used for unknown indication
     Dosage: TAB 75MG DR
     Route: 048

REACTIONS (4)
  - Illness [Recovered/Resolved]
  - Urticaria [Recovered/Resolved]
  - Injection site urticaria [Not Recovered/Not Resolved]
  - Injection site pain [Not Recovered/Not Resolved]
